FAERS Safety Report 4635984-X (Version None)
Quarter: 2005Q2

REPORT INFORMATION
  Report Type: 
  Country: None (occurrence: None)
  Receive Date: 20050415
  Receipt Date: 20050405
  Transmission Date: 20051028
  Serious: Yes (Life-Threatening)
  Sender: FDA-Public Use
  Company Number: 200512775US

PATIENT
  Sex: Female
  Weight: 86.1 kg

DRUGS (2)
  1. CODE UNBROKEN-HMR3647 OR AZITHROMYCIN [Suspect]
     Indication: PNEUMONIA
     Dosage: DOSE: TWO CAPS
     Route: 048
     Dates: start: 20050328
  2. COUMADIN [Suspect]
     Indication: ATRIAL FIBRILLATION
     Dosage: DOSE: UNK

REACTIONS (4)
  - DRUG INTERACTION [None]
  - EPISTAXIS [None]
  - HYPOCOAGULABLE STATE [None]
  - INTERNATIONAL NORMALISED RATIO INCREASED [None]
